FAERS Safety Report 5529573-2 (Version None)
Quarter: 2007Q4

REPORT INFORMATION
  Report Type: 
  Country: None (occurrence: None)
  Receive Date: 20071129
  Receipt Date: 20071120
  Transmission Date: 20080405
  Serious: Yes (Hospitalization)
  Sender: FDA-Public Use
  Company Number: DE-PFIZER INC-2006146983

PATIENT
  Sex: Female
  Weight: 84 kg

DRUGS (10)
  1. GENOTROPIN [Suspect]
     Indication: HYPOPITUITARISM
     Dosage: DAILY DOSE:.4MG
  2. HYDROCORTISON [Concomitant]
     Indication: ADRENAL INSUFFICIENCY
     Dosage: DAILY DOSE:20MG-FREQ:DAILY
  3. HYDROCORTISON [Concomitant]
     Dosage: DAILY DOSE:20MG-FREQ:DAILY
  4. PRESOMEN [Concomitant]
     Indication: OVARIAN FAILURE
     Dosage: DAILY DOSE:.6MG-FREQ:DAILY
     Dates: start: 19940101
  5. PRESOMEN [Concomitant]
     Dosage: DAILY DOSE:.6MG
     Dates: start: 19940701
  6. ASTONIN-H [Concomitant]
     Indication: ESSENTIAL HYPERTENSION
     Dosage: DAILY DOSE:.1MG-FREQ:DAILY
     Dates: start: 19940630
  7. DOCITON [Concomitant]
     Indication: ESSENTIAL HYPERTENSION
     Dosage: DAILY DOSE:50MG-FREQ:DAILY
     Dates: start: 19991001
  8. METOPROLOL [Concomitant]
     Indication: ESSENTIAL HYPERTENSION
     Dosage: DAILY DOSE:50MG
     Dates: start: 20000101
  9. DHEA [Concomitant]
     Dosage: DAILY DOSE:50MG-FREQ:DAILY
     Dates: start: 20020712
  10. L-THYROXIN ^HENNING BERLIN^ [Concomitant]
     Dosage: DAILY DOSE:75MCG-FREQ:DAILY
     Dates: start: 20020815

REACTIONS (1)
  - GASTROINTESTINAL ANGIODYSPLASIA [None]
